FAERS Safety Report 23907075 (Version 1)
Quarter: 2024Q2

REPORT INFORMATION
  Report Type: Spontaneous
  Country: IT (occurrence: IT)
  Receive Date: 20240528
  Receipt Date: 20240528
  Transmission Date: 20240716
  Serious: Yes (Other)
  Sender: FDA-Public Use
  Company Number: IT-MINISAL02-972919

PATIENT
  Age: 57 Year
  Sex: Male

DRUGS (2)
  1. GEMCITABINE [Suspect]
     Active Substance: GEMCITABINE
     Indication: Bladder cancer
     Dosage: 1500 MG EVERY 1ST, 8TH AND 15TH OF EACH 28 DAY CYCLE
     Route: 065
     Dates: start: 20240208, end: 20240208
  2. CISPLATIN [Suspect]
     Active Substance: CISPLATIN
     Indication: Bladder cancer
     Dosage: 80 MG EVERY 1ST, 8TH AND 15TH OF EACH 28 DAY CYCLE
     Route: 065
     Dates: start: 20240201, end: 20240201

REACTIONS (2)
  - Neutropenia [Not Recovered/Not Resolved]
  - Asthenia [Not Recovered/Not Resolved]

NARRATIVE: CASE EVENT DATE: 20240222
